FAERS Safety Report 8776524 (Version 3)
Quarter: 2012Q4

REPORT INFORMATION
  Report Type: 
  Country: JP (occurrence: JP)
  Receive Date: 20120910
  Receipt Date: 20121203
  Transmission Date: 20130627
  Serious: Yes (Hospitalization, Other)
  Sender: FDA-Public Use
  Company Number: PHHY2011JP111582

PATIENT
  Age: 60 Year
  Sex: Male
  Weight: 59 kg

DRUGS (4)
  1. LAMISIL [Suspect]
     Indication: ONYCHOMYCOSIS
     Dosage: 125 mg, QD
     Route: 048
     Dates: start: 20090619, end: 20090717
  2. GLYCYRON [Concomitant]
     Indication: LIVER DISORDER
     Route: 048
     Dates: start: 20090721
  3. TATHION [Concomitant]
     Indication: LIVER DISORDER
     Route: 048
     Dates: start: 20090721
  4. HANGE-SHASHIN-TO [Concomitant]
     Indication: LIVER DISORDER
     Route: 048
     Dates: start: 20090717

REACTIONS (14)
  - Hepatic function abnormal [Recovered/Resolved]
  - Malaise [Recovering/Resolving]
  - Decreased appetite [Recovering/Resolving]
  - Jaundice [Recovering/Resolving]
  - Blood bilirubin increased [Recovered/Resolved]
  - Cholestasis [Unknown]
  - Hepatocellular injury [Unknown]
  - Prothrombin time prolonged [Unknown]
  - Activated partial thromboplastin time prolonged [Unknown]
  - Protein total decreased [Unknown]
  - Thirst [Recovering/Resolving]
  - Calculus urinary [Recovering/Resolving]
  - Abdominal pain [Unknown]
  - Back pain [Unknown]
